FAERS Safety Report 7691312-7 (Version None)
Quarter: 2011Q3

REPORT INFORMATION
  Report Type: 
  Country: None (occurrence: None)
  Receive Date: 20110818
  Receipt Date: 20101110
  Transmission Date: 20111222
  Serious: Yes (Death, Life-Threatening)
  Sender: FDA-Public Use
  Company Number: DE-AMGEN-DEUSP1992000001

PATIENT

DRUGS (6)
  1. CISPLATIN [Concomitant]
     Dosage: UNK
     Dates: start: 19920114
  2. NEUPOGEN [Suspect]
     Indication: NEUTROPENIA
     Dosage: 300 A?G, BID
     Route: 058
     Dates: start: 19920221, end: 19920321
  3. ANTINEOPLASTIC AGENTS [Suspect]
     Dosage: UNK
     Dates: start: 19920114
  4. ADRIAMYCIN PFS [Concomitant]
     Dosage: UNK
     Dates: start: 19920114
  5. METHOTREXATE [Concomitant]
     Dosage: UNK
     Dates: start: 19920114
  6. VINCRISTINE [Concomitant]
     Dosage: UNK
     Dates: start: 19920114

REACTIONS (6)
  - HAEMORRHAGE [None]
  - DISSEMINATED INTRAVASCULAR COAGULATION [None]
  - BLADDER CANCER [None]
  - FIBRINOLYSIS INCREASED [None]
  - SEPSIS [None]
  - THROMBOCYTOPENIA [None]
